FAERS Safety Report 8971387 (Version 2)
Quarter: 2013Q2

REPORT INFORMATION
  Report Type: Report from Study
  Country: MX (occurrence: MX)
  Receive Date: 20121218
  Receipt Date: 20130517
  Transmission Date: 20140414
  Serious: Yes (Death, Hospitalization, Other)
  Sender: FDA-Public Use
  Company Number: PHHY2012MX116208

PATIENT
  Age: 66 Year
  Sex: Male

DRUGS (1)
  1. ONBREZ [Suspect]
     Dosage: 150 UG, DAILY
     Dates: start: 20121112, end: 20121118

REACTIONS (7)
  - Death [Fatal]
  - Renal impairment [Unknown]
  - Renal pain [Unknown]
  - Dysuria [Unknown]
  - Respiratory arrest [Unknown]
  - Pain [Unknown]
  - Headache [Unknown]
